FAERS Safety Report 8316348-4 (Version None)
Quarter: 2012Q2

REPORT INFORMATION
  Report Type: 
  Country: None (occurrence: None)
  Receive Date: 20120427
  Receipt Date: 20120418
  Transmission Date: 20120825
  Serious: No
  Sender: FDA-Public Use
  Company Number: US-PFIZER INC-2012097228

PATIENT
  Sex: Female

DRUGS (14)
  1. GABAPENTIN [Suspect]
     Dosage: 600 MG, 3X/DAY
     Route: 048
     Dates: start: 20111031, end: 20120226
  2. GABAPENTIN [Suspect]
     Dosage: 600 MG, 4X/DAY
     Route: 048
     Dates: start: 20120227
  3. TYLENOL (CAPLET) [Suspect]
     Dosage: UNK
  4. GABAPENTIN [Suspect]
     Dosage: 500 MG DAILY
     Route: 048
  5. FIORICET [Concomitant]
     Dosage: UNK, PRN
  6. VITAMIN E [Concomitant]
     Dosage: UNK
  7. GABAPENTIN [Suspect]
     Dosage: 1200 MG DAILY
     Route: 048
     Dates: start: 20110830, end: 20111030
  8. TRAMADOL HCL [Suspect]
     Dosage: 50 MG, 4X/DAY
     Route: 048
     Dates: start: 20110830, end: 20111227
  9. MEVACOR [Concomitant]
     Dosage: UNK
  10. LYRICA [Suspect]
     Dosage: 75 MG, 3X/DAY
     Route: 048
     Dates: start: 20111227
  11. LIPITOR [Suspect]
     Dosage: UNK
  12. ZOLOFT [Suspect]
     Indication: DEPRESSION
     Dosage: 100 MG DAILY
     Route: 048
  13. LISINOPRIL [Concomitant]
     Dosage: UNK
  14. TRIAZOLAM [Concomitant]
     Dosage: UNK

REACTIONS (3)
  - SPEECH DISORDER [None]
  - PAIN [None]
  - MYALGIA [None]
